FAERS Safety Report 7155104-X (Version None)
Quarter: 2010Q4

REPORT INFORMATION
  Report Type: 
  Country: None (occurrence: None)
  Receive Date: 20101214
  Receipt Date: 20091228
  Transmission Date: 20110411
  Serious: Yes (Other)
  Sender: FDA-Public Use
  Company Number: US-AMGEN-QUU374985

PATIENT

DRUGS (3)
  1. ENBREL [Suspect]
     Indication: RHEUMATOID ARTHRITIS
     Dosage: 50 MG, QWK
     Route: 058
     Dates: start: 20080601, end: 20091111
  2. METHOTREXATE [Concomitant]
     Dosage: 20 MG, QWK
  3. ALENDRONATE SODIUM [Concomitant]

REACTIONS (1)
  - OESOPHAGEAL CARCINOMA [None]
